FAERS Safety Report 16156495 (Version 2)
Quarter: 2019Q2

REPORT INFORMATION
  Report Type: Spontaneous
  Country: US (occurrence: US)
  Receive Date: 20190404
  Receipt Date: 20190509
  Transmission Date: 20190711
  Serious: No
  Sender: FDA-Public Use
  Company Number: US-ASTRAZENECA-2018SF50246

PATIENT
  Age: 75 Year
  Sex: Male

DRUGS (2)
  1. BYDUREON BCISE [Suspect]
     Active Substance: EXENATIDE
     Route: 058
  2. BYDUREON [Suspect]
     Active Substance: EXENATIDE
     Route: 058

REACTIONS (7)
  - Incorrect dose administered [Unknown]
  - Device leakage [Unknown]
  - Injection site pain [Unknown]
  - Device issue [Unknown]
  - Abdominal hernia infection [Unknown]
  - Hernia [Unknown]
  - Wrong technique in device usage process [Unknown]
